FAERS Safety Report 12628853 (Version 1)
Quarter: 2016Q3

REPORT INFORMATION
  Report Type: Other
  Country: DE (occurrence: DE)
  Receive Date: 20160808
  Receipt Date: 20160808
  Transmission Date: 20161109
  Serious: Yes (Congenital Anomaly, Other)
  Sender: FDA-Public Use
  Company Number: DE-LUPIN PHARMACEUTICALS INC.-E2B_00005910

PATIENT
  Age: 1 Day
  Sex: Female
  Weight: 1.23 kg

DRUGS (8)
  1. GYNVITAL GRAVIDA [Concomitant]
     Active Substance: HERBALS
     Indication: PROPHYLAXIS OF NEURAL TUBE DEFECT
     Route: 064
  2. GLUCOSE 5% INFUSION [Concomitant]
     Indication: NAUSEA
     Route: 064
     Dates: start: 20150529, end: 20150529
  3. MIRTAZAPIN [Concomitant]
     Active Substance: MIRTAZAPINE
     Indication: NAUSEA
     Route: 064
  4. SERTRALINE [Suspect]
     Active Substance: SERTRALINE HYDROCHLORIDE
     Indication: ANXIETY DISORDER
     Route: 064
     Dates: start: 20150223, end: 20150929
  5. PANTOPRAZOL [Concomitant]
     Active Substance: PANTOPRAZOLE SODIUM
     Indication: GASTRITIS
     Route: 064
  6. OMEPRAZOL [Concomitant]
     Active Substance: OMEPRAZOLE
     Indication: PROPHYLAXIS AGAINST GASTROINTESTINAL ULCER
     Dosage: 20 MG
     Route: 064
  7. MCP [Concomitant]
     Active Substance: METOCLOPRAMIDE HYDROCHLORIDE
     Indication: NAUSEA
     Route: 064
     Dates: start: 20150529, end: 20150529
  8. TAVOR 1,0 EXPIDET [Concomitant]
     Indication: PRODUCT USED FOR UNKNOWN INDICATION
     Route: 064

REACTIONS (6)
  - Granulocytopenia neonatal [Not Recovered/Not Resolved]
  - Neonatal respiratory distress syndrome [Recovered/Resolved]
  - Foetal exposure during pregnancy [Unknown]
  - Tethered cord syndrome [Not Recovered/Not Resolved]
  - Congenital skin dimples [Not Recovered/Not Resolved]
  - Premature baby [Unknown]

NARRATIVE: CASE EVENT DATE: 20150929
